FAERS Safety Report 4416190-0 (Version None)
Quarter: 2004Q3

REPORT INFORMATION
  Report Type: 
  Country: None (occurrence: None)
  Receive Date: 20040804
  Receipt Date: 20040804
  Transmission Date: 20050211
  Serious: Yes (Hospitalization)
  Sender: FDA-Public Use
  Company Number: None

PATIENT
  Age: 74 Year
  Sex: Male
  Weight: 70.7 kg

DRUGS (1)
  1. GEMTUZUMAB OZOGAMICIN (MYLOTARG) [Suspect]
     Indication: LEUKAEMIA
     Dosage: 9 MG /M2 (18 MG)
     Dates: start: 20030619

REACTIONS (7)
  - DRUG TOXICITY [None]
  - MUCOSAL INFLAMMATION [None]
  - NAUSEA [None]
  - NEUTROPENIA [None]
  - PYREXIA [None]
  - THROMBOCYTOPENIA [None]
  - VOMITING [None]
